FAERS Safety Report 5309083-8 (Version None)
Quarter: 2007Q2

REPORT INFORMATION
  Report Type: 
  Country: None (occurrence: None)
  Receive Date: 20070420
  Receipt Date: 20070405
  Transmission Date: 20071010
  Serious: Yes (Disabling, Other)
  Sender: FDA-Public Use
  Company Number: 154986ISR

PATIENT
  Age: 77 Year
  Sex: Male

DRUGS (1)
  1. OFLOXACIN [Suspect]
     Dosage: 800 MG (400 MG, 2 IN 1 D); ORAL
     Route: 048
     Dates: start: 20070214, end: 20070221

REACTIONS (1)
  - MUSCLE SPASMS [None]
